FAERS Safety Report 13860440 (Version 2)
Quarter: 2017Q3

REPORT INFORMATION
  Report Type: Report from Study
  Country: US (occurrence: US)
  Receive Date: 20170811
  Receipt Date: 20170929
  Transmission Date: 20171127
  Serious: Yes (Hospitalization)
  Sender: FDA-Public Use
  Company Number: US-PFIZER INC-2017340937

PATIENT
  Age: 69 Year
  Sex: Female
  Weight: 90 kg

DRUGS (8)
  1. LOSARTAN. [Concomitant]
     Active Substance: LOSARTAN
     Indication: HYPERTENSION
     Dosage: 50 MG, DAILY
     Route: 048
     Dates: start: 20020101
  2. HCTZ [Concomitant]
     Active Substance: HYDROCHLOROTHIAZIDE
     Indication: HYPERTENSION
     Dosage: 25 MG, DAILY
     Route: 048
     Dates: start: 20170726
  3. INLYTA [Suspect]
     Active Substance: AXITINIB
     Indication: RENAL CELL CARCINOMA
     Dosage: 5 MG, 2X/DAY CONTINUOUS
     Route: 048
     Dates: start: 20170608, end: 20170803
  4. LANTUS [Concomitant]
     Active Substance: INSULIN GLARGINE
     Indication: TYPE 2 DIABETES MELLITUS
     Dosage: 45 UNITS, DAILY
     Route: 058
     Dates: start: 20170225
  5. NEURONTIN [Concomitant]
     Active Substance: GABAPENTIN
     Indication: NEUROPATHY PERIPHERAL
     Dosage: 600 MG, EVERY 12HRS
     Route: 048
     Dates: start: 20150101
  6. METFORMIN [Concomitant]
     Active Substance: METFORMIN HYDROCHLORIDE
     Indication: TYPE 2 DIABETES MELLITUS
     Dosage: 500 MG, EVERY 12 HRS
     Route: 048
     Dates: start: 20170225
  7. AVELUMAB [Suspect]
     Active Substance: AVELUMAB
     Indication: RENAL CELL CARCINOMA
     Dosage: 941 MG, EVERY 2 WEEKS
     Route: 042
     Dates: start: 20170608, end: 20170803
  8. LOTEMAX [Concomitant]
     Active Substance: LOTEPREDNOL ETABONATE
     Indication: DRY EYE
     Dosage: 0.5%, 3-4-TIMES DAILY (LEFT EYE)
     Route: 047
     Dates: start: 20170714

REACTIONS (1)
  - Troponin I increased [Recovered/Resolved]

NARRATIVE: CASE EVENT DATE: 20170803
